FAERS Safety Report 4984019-8 (Version None)
Quarter: 2006Q1

REPORT INFORMATION
  Report Type: 
  Country: None (occurrence: None)
  Receive Date: 20060301
  Receipt Date: 20051025
  Transmission Date: 20060701
  Serious: Yes (Hospitalization)
  Sender: FDA-Public Use
  Company Number: S05-USA-04275-01

PATIENT
  Age: 86 Year
  Sex: Male

DRUGS (10)
  1. NAMENDA [Suspect]
     Indication: DEMENTIA
     Dosage: 15 MG QD PO
     Route: 048
     Dates: start: 20050904, end: 20050906
  2. NAMENDA [Suspect]
     Indication: DEMENTIA
     Dosage: 5 MG QD PO
     Route: 048
     Dates: start: 20050821, end: 20050827
  3. NAMENDA [Suspect]
     Indication: DEMENTIA
     Dosage: 5 MG BID PO
     Route: 048
     Dates: start: 20050828, end: 20050903
  4. ARICEPT [Concomitant]
  5. ZOLOFT [Concomitant]
  6. TITRALAC [Concomitant]
  7. TUMS (CALCIUM CARBONATE) [Concomitant]
  8. PREVACID [Concomitant]
  9. DIGOXIN [Concomitant]
  10. MULTI-VITAMIN [Concomitant]

REACTIONS (1)
  - CEREBROVASCULAR ACCIDENT [None]
